FAERS Safety Report 7535188-7 (Version None)
Quarter: 2011Q2

REPORT INFORMATION
  Report Type: 
  Country: None (occurrence: None)
  Receive Date: 20110609
  Receipt Date: 20090303
  Transmission Date: 20111010
  Serious: Yes (Hospitalization, Other)
  Sender: FDA-Public Use
  Company Number: PHHY2009CA04874

PATIENT
  Sex: Male
  Weight: 76.8 kg

DRUGS (4)
  1. EXJADE [Suspect]
     Indication: MYELODYSPLASTIC SYNDROME
  2. CHEMOTHERAPEUTICS NOS [Concomitant]
     Indication: MYELODYSPLASTIC SYNDROME
  3. BLOOD TRANSFUSION, AUXILIARY PRODUCTS [Concomitant]
  4. EXJADE [Suspect]
     Indication: IRON OVERLOAD
     Dosage: 1500 MG, QD
     Route: 048
     Dates: start: 20080516

REACTIONS (5)
  - SEPSIS [None]
  - WOUND INFECTION [None]
  - DEVICE RELATED INFECTION [None]
  - JOINT ABSCESS [None]
  - NEOPLASM MALIGNANT [None]
